FAERS Safety Report 6847583-X (Version None)
Quarter: 2010Q3

REPORT INFORMATION
  Report Type: 
  Country: None (occurrence: None)
  Receive Date: 20100714
  Receipt Date: 20100630
  Transmission Date: 20110219
  Serious: Yes (Hospitalization)
  Sender: FDA-Public Use
  Company Number: UTC-001221

PATIENT
  Age: 68 Year
  Sex: Female
  Weight: 77 kg

DRUGS (13)
  1. REMODULIN [Suspect]
     Dosage: 152.64 UG/KG (0.106 UG/KG, 1 IN 1 MIN), SUBCUTANEOUS
     Route: 058
     Dates: start: 20061129
  2. FOSAMAX [Concomitant]
  3. SINGULAIR [Concomitant]
  4. ALDACTONE [Concomitant]
  5. CELEBREX [Concomitant]
  6. LASIX [Concomitant]
  7. PREDNISONE TAB [Concomitant]
  8. VIAGRA [Concomitant]
  9. POTASSIUM CHLORIDE [Concomitant]
  10. NASONEX [Concomitant]
  11. CALCARB (CALCIUM CARBONATE) [Concomitant]
  12. METHIMAZOLE (THAIMAZOLE) [Concomitant]
  13. FLECAINIDE ACETATE [Concomitant]

REACTIONS (3)
  - EPISTAXIS [None]
  - OXYGEN SATURATION DECREASED [None]
  - PNEUMONIA [None]
